FAERS Safety Report 23824946 (Version 2)
Quarter: 2024Q2

REPORT INFORMATION
  Report Type: Spontaneous
  Country: DE (occurrence: DE)
  Receive Date: 20240507
  Receipt Date: 20240610
  Transmission Date: 20240716
  Serious: Yes (Hospitalization)
  Sender: FDA-Public Use
  Company Number: DE-Nova Laboratories Limited-2156568

PATIENT
  Sex: Male

DRUGS (19)
  1. PURIXAN [Suspect]
     Active Substance: MERCAPTOPURINE
     Dates: start: 20220713
  2. PREDNISONE ACETATE [Suspect]
     Active Substance: PREDNISONE ACETATE
     Dates: start: 20211007
  3. LACOSAMIDE [Suspect]
     Active Substance: LACOSAMIDE
     Dates: start: 20240313
  4. METHOTREXATE SODIUM [Suspect]
     Active Substance: METHOTREXATE SODIUM
     Dates: start: 20230303
  5. METHOTREXATE SODIUM [Suspect]
     Active Substance: METHOTREXATE SODIUM
     Dates: start: 20220713
  6. DOXORUBICIN HYDROCHLORIDE [Suspect]
     Active Substance: DOXORUBICIN HYDROCHLORIDE
     Dates: start: 20220328
  7. VINCRISTINE [Suspect]
     Active Substance: VINCRISTINE
     Dates: start: 20220328
  8. VINCRISTINE [Suspect]
     Active Substance: VINCRISTINE
     Dates: start: 20211007
  9. DAUNORUBICIN [Suspect]
     Active Substance: DAUNORUBICIN
     Dates: start: 20211007
  10. LEVETIRACETAM [Suspect]
     Active Substance: LEVETIRACETAM
     Dates: start: 20211007
  11. LEVETIRACETAM [Suspect]
     Active Substance: LEVETIRACETAM
     Dates: start: 20220328
  12. LEVETIRACETAM [Suspect]
     Active Substance: LEVETIRACETAM
     Dates: start: 20211007
  13. LACOSAMIDE [Suspect]
     Active Substance: LACOSAMIDE
     Dates: start: 20230417
  14. LACOSAMIDE [Suspect]
     Active Substance: LACOSAMIDE
     Dates: start: 20230303
  15. LACOSAMIDE [Suspect]
     Active Substance: LACOSAMIDE
     Dates: start: 20220713
  16. LACOSAMIDE [Suspect]
     Active Substance: LACOSAMIDE
     Dates: start: 20220328
  17. PEGASPARGASE [Suspect]
     Active Substance: PEGASPARGASE
     Dates: start: 20220328
  18. PEGASPARGASE [Suspect]
     Active Substance: PEGASPARGASE
     Dates: start: 20211007
  19. DEXAMETHASONE [Suspect]
     Active Substance: DEXAMETHASONE
     Dates: start: 20220328

REACTIONS (12)
  - Vomiting [Unknown]
  - Erythema infectiosum [Unknown]
  - Middle insomnia [Unknown]
  - Muscle spasms [Unknown]
  - Scratch [Unknown]
  - Eye movement disorder [Unknown]
  - Fungal skin infection [Unknown]
  - Cough [Unknown]
  - Pyrexia [Unknown]
  - Infection [Unknown]
  - Headache [Unknown]
  - Hepatic enzyme increased [Unknown]
